FAERS Safety Report 16431698 (Version 1)
Quarter: 2019Q3

REPORT INFORMATION
  Report Type: Spontaneous
  Country: US (occurrence: US)
  Receive Date: 20190613
  Receipt Date: 20190613
  Transmission Date: 20191004
  Serious: Yes (Hospitalization)
  Sender: FDA-Public Use
  Company Number: None

PATIENT
  Sex: Female

DRUGS (8)
  1. LISINOPRIL. [Concomitant]
     Active Substance: LISINOPRIL
  2. LUMIGAN [Concomitant]
     Active Substance: BIMATOPROST
  3. MYCOPHENOLIC [Concomitant]
     Active Substance: MYCOPHENOLIC ACID
  4. TACROLIMUS. [Suspect]
     Active Substance: TACROLIMUS
     Indication: RENAL TRANSPLANT
     Dosage: ?          OTHER FREQUENCY:EVERY 12 HOURS;?
     Route: 048
     Dates: start: 20150703
  5. CARVEDILOL. [Concomitant]
     Active Substance: CARVEDILOL
  6. TACROLIMUS. [Suspect]
     Active Substance: TACROLIMUS
     Indication: RENAL TRANSPLANT
     Route: 048
     Dates: start: 20160305
  7. SIMVASTATIN. [Concomitant]
     Active Substance: SIMVASTATIN
  8. SODIUM BICAR [Concomitant]

REACTIONS (1)
  - Hip fracture [None]
